FAERS Safety Report 19489046 (Version 2)
Quarter: 2022Q2

REPORT INFORMATION
  Report Type: Report from Study
  Country: US (occurrence: US)
  Receive Date: 20210703
  Receipt Date: 20220422
  Transmission Date: 20220721
  Serious: Yes (Hospitalization, Other)
  Sender: FDA-Public Use
  Company Number: US-BRISTOL-MYERS SQUIBB COMPANY-BMS-2021-063278

PATIENT
  Age: 59 Year
  Sex: Female
  Weight: 89.4 kg

DRUGS (4)
  1. IPILIMUMAB [Suspect]
     Active Substance: IPILIMUMAB
     Indication: Uveal melanoma
     Route: 042
     Dates: start: 20210312, end: 20210618
  2. NIVOLUMAB [Suspect]
     Active Substance: NIVOLUMAB
     Indication: Uveal melanoma
     Route: 042
     Dates: start: 20210312, end: 20210618
  3. ATENOLOL [Concomitant]
     Active Substance: ATENOLOL
     Indication: Tachycardia
     Dosage: 25 MILLIGRAM, QD
     Route: 065
     Dates: start: 20210621
  4. COLACE [Concomitant]
     Active Substance: DOCUSATE SODIUM
     Indication: Constipation
     Dosage: UNK
     Route: 065
     Dates: start: 20210514

REACTIONS (2)
  - Colitis [Recovered/Resolved]
  - COVID-19 [Unknown]

NARRATIVE: CASE EVENT DATE: 20210625
